FAERS Safety Report 8566177 (Version 3)
Quarter: 2014Q1

REPORT INFORMATION
  Report Type: Spontaneous
  Country: US (occurrence: US)
  Receive Date: 20120517
  Receipt Date: 20140124
  Transmission Date: 20141002
  Serious: No
  Sender: FDA-Public Use
  Company Number: US-PFIZER INC-2012117762

PATIENT
  Age: 88 Year
  Sex: Female

DRUGS (8)
  1. LYRICA [Suspect]
     Dosage: 75 MG, QHS
     Route: 048
  2. IBUPROFEN [Concomitant]
  3. ELAVIL [Concomitant]
  4. COREG [Concomitant]
  5. LIPITOR [Concomitant]
  6. OMEPRAZOLE [Concomitant]
  7. XANAX [Concomitant]
  8. TYLENOL [Concomitant]

REACTIONS (1)
  - Nervousness [Unknown]
